FAERS Safety Report 9464941 (Version 4)
Quarter: 2014Q2

REPORT INFORMATION
  Report Type: Report from Study
  Country: AU (occurrence: AU)
  Receive Date: 20130819
  Receipt Date: 20140402
  Transmission Date: 20141212
  Serious: Yes (Hospitalization, Other)
  Sender: FDA-Public Use
  Company Number: PHHY2013AU061194

PATIENT
  Age: 40 Year
  Sex: Male

DRUGS (5)
  1. CLOZARIL [Suspect]
     Indication: SCHIZOPHRENIA, PARANOID TYPE
     Dosage: 75 MG, UNK
     Dates: start: 19990601, end: 20130529
  2. CLOZARIL [Suspect]
     Dosage: UNK
     Dates: end: 20130611
  3. CLOZARIL [Suspect]
     Dosage: UNK
     Dates: start: 20130703, end: 20131221
  4. OLANZAPINE [Concomitant]
     Dosage: 300 MG, QW
     Route: 030
  5. CLONAZEPAM [Concomitant]
     Dosage: 2.5 MG, AT MORNING
     Route: 048

REACTIONS (4)
  - Schizophrenia [Unknown]
  - Agitation [Unknown]
  - Delusion [Recovering/Resolving]
  - Mental impairment [Unknown]
